FAERS Safety Report 10362574 (Version 1)
Quarter: 2014Q1

REPORT INFORMATION
  Report Type: Spontaneous
  Country: US (occurrence: None)
  Receive Date: 20140306
  Receipt Date: 20140306
  Transmission Date: 20141002
  Serious: Yes (Other)
  Sender: FDA-Public Use
  Company Number: 163-21880-13051496

PATIENT
  Age: 81 Year
  Sex: Male
  Weight: 69.4 kg

DRUGS (5)
  1. REVLIMID [Suspect]
     Indication: MYELODYSPLASTIC SYNDROME
     Dosage: 10 MG, 21 IN 28 D
     Route: 048
     Dates: start: 20130406
  2. CALCIUM + VITAMIN D (LEKOVIT CA) (UNKNOWN) [Concomitant]
  3. FISH OIL (CAPSULES) [Concomitant]
  4. SODIUM FLUORIDE (CREAM) [Concomitant]
  5. HYDROCORTISON (HYDROCORTISONE) (CREAM) [Concomitant]

REACTIONS (3)
  - Platelet count decreased [None]
  - White blood cell count decreased [None]
  - Red blood cell count decreased [None]
